FAERS Safety Report 16787830 (Version 2)
Quarter: 2019Q4

REPORT INFORMATION
  Report Type: Spontaneous
  Country: US (occurrence: US)
  Receive Date: 20190909
  Receipt Date: 20191031
  Transmission Date: 20200122
  Serious: Yes (Hospitalization)
  Sender: FDA-Public Use
  Company Number: US-PFM-2019-10644

PATIENT
  Sex: Female
  Weight: 9.52 kg

DRUGS (1)
  1. HEMANGEOL [Suspect]
     Active Substance: PROPRANOLOL HYDROCHLORIDE
     Indication: INFANTILE HAEMANGIOMA
     Dosage: 1.8 ML, BID (2/DAY)
     Route: 048

REACTIONS (3)
  - Dehydration [Recovered/Resolved]
  - Heart rate decreased [Recovered/Resolved]
  - Gastroenteritis viral [Recovered/Resolved]
